FAERS Safety Report 9661852 (Version 2)
Quarter: 2013Q4

REPORT INFORMATION
  Report Type: Spontaneous
  Country: US (occurrence: US)
  Receive Date: 20131031
  Receipt Date: 20131031
  Transmission Date: 20140711
  Serious: No
  Sender: FDA-Public Use
  Company Number: US-PURDUE-USA-2010-0059653

PATIENT
  Age: 56 Year
  Sex: Male

DRUGS (5)
  1. OXYCONTIN (NDA 22-272) [Suspect]
     Indication: PAIN
     Dosage: 80 MG, TID
     Dates: start: 20100910
  2. OXYCONTIN (NDA 22-272) [Suspect]
     Dosage: 20 MG, BID
  3. CYCLOBENZAPRINE [Concomitant]
     Indication: HYPOTONIA
     Dosage: UNK, TID
  4. PROMETHAZINE [Concomitant]
     Indication: NAUSEA
     Dosage: UNK, Q4- 6H
  5. AMBIEN CR [Concomitant]
     Indication: SLEEP DISORDER
     Dosage: UNK, HS

REACTIONS (3)
  - Drug intolerance [Recovered/Resolved]
  - Abdominal pain upper [Recovered/Resolved]
  - Nausea [Recovered/Resolved]
